FAERS Safety Report 17055955 (Version 3)
Quarter: 2019Q4

REPORT INFORMATION
  Report Type: Spontaneous
  Country: MX (occurrence: MX)
  Receive Date: 20191120
  Receipt Date: 20191206
  Transmission Date: 20200122
  Serious: Yes (Other)
  Sender: FDA-Public Use
  Company Number: MX-LUNDBECK-DKLU3007767

PATIENT
  Sex: Female
  Weight: 71 kg

DRUGS (25)
  1. PLAVIX [Suspect]
     Active Substance: CLOPIDOGREL BISULFATE
     Indication: ANTICOAGULANT THERAPY
     Route: 048
     Dates: start: 2015
  2. PANTOPRAZOLE SODIUM. [Suspect]
     Active Substance: PANTOPRAZOLE SODIUM
     Indication: PRODUCT USED FOR UNKNOWN INDICATION
     Route: 065
  3. FOLIC ACID; IRON [Concomitant]
     Indication: ANAEMIA
     Route: 065
  4. FRISIUM [Suspect]
     Active Substance: CLOBAZAM
     Indication: EPILEPSY
     Route: 048
     Dates: start: 2015
  5. LEVETIRACETAM. [Suspect]
     Active Substance: LEVETIRACETAM
     Route: 065
  6. TRANSTEC [Suspect]
     Active Substance: BUPRENORPHINE
     Indication: BACK PAIN
     Route: 062
  7. SIFROL [Suspect]
     Active Substance: PRAMIPEXOLE
     Indication: EPILEPSY
     Route: 048
     Dates: start: 2015
  8. UNIVAL [LANSOPRAZOLE] [Suspect]
     Active Substance: LANSOPRAZOLE
     Indication: ABDOMINAL PAIN UPPER
  9. LEVETIRACETAM. [Suspect]
     Active Substance: LEVETIRACETAM
     Route: 065
  10. NEXIUM [Suspect]
     Active Substance: ESOMEPRAZOLE MAGNESIUM
     Indication: GASTRIC ULCER
     Route: 048
     Dates: start: 2016
  11. UNIVAL [LANSOPRAZOLE] [Suspect]
     Active Substance: LANSOPRAZOLE
     Indication: NAUSEA
     Route: 048
  12. LEVETIRACETAM. [Concomitant]
     Active Substance: LEVETIRACETAM
     Indication: EPILEPSY
     Route: 065
     Dates: start: 2013
  13. MODIVAL [Concomitant]
     Active Substance: CLORAZEPATE DIPOTASSIUM
     Indication: EXERCISE LACK OF
     Route: 065
     Dates: start: 2016
  14. BROMAZEPAM [Suspect]
     Active Substance: BROMAZEPAM
     Indication: EPILEPSY
     Route: 048
  15. TRANSTEC [Suspect]
     Active Substance: BUPRENORPHINE
     Indication: BACK PAIN
  16. DIOSMIN [Concomitant]
     Active Substance: DIOSMIN
     Indication: PERIPHERAL VASCULAR DISORDER
     Route: 065
  17. OMEPRAZOLE. [Suspect]
     Active Substance: OMEPRAZOLE
     Indication: PRODUCT USED FOR UNKNOWN INDICATION
     Route: 048
  18. VIVITAR [Suspect]
     Active Substance: SPIRONOLACTONE
     Indication: HEART RATE ABNORMAL
     Route: 048
  19. LEVETIRACETAM. [Suspect]
     Active Substance: LEVETIRACETAM
     Indication: EPILEPSY
     Route: 065
  20. ALTEC (RAMIPRIL) [Suspect]
     Active Substance: RAMIPRIL
     Indication: PRODUCT USED FOR UNKNOWN INDICATION
     Route: 065
  21. VIVITAR [Suspect]
     Active Substance: SPIRONOLACTONE
     Indication: HEART RATE ABNORMAL
  22. MODIOVAL (MODAFINIL) [Suspect]
     Active Substance: MODAFINIL
     Indication: DECREASED ACTIVITY
     Route: 048
     Dates: start: 2015
  23. CO-DIOVAN [Suspect]
     Active Substance: HYDROCHLOROTHIAZIDE\VALSARTAN
     Indication: HYPERTENSION
     Route: 048
  24. NALTREXONE [Suspect]
     Active Substance: NALTREXONE
     Indication: PRODUCT USED FOR UNKNOWN INDICATION
     Route: 065
  25. MAGNESIUM VALPROATE [Concomitant]
     Active Substance: VALPROATE MAGNESIUM
     Indication: PRODUCT USED FOR UNKNOWN INDICATION
     Route: 065

REACTIONS (5)
  - Oesophagitis [Not Recovered/Not Resolved]
  - Anaemia [Not Recovered/Not Resolved]
  - Thrombosis [Recovered/Resolved]
  - Iodine allergy [Unknown]
  - Gastric ulcer [Not Recovered/Not Resolved]

NARRATIVE: CASE EVENT DATE: 2015
